FAERS Safety Report 6752137-X (Version None)
Quarter: 2010Q2

REPORT INFORMATION
  Report Type: 
  Country: None (occurrence: None)
  Receive Date: 20100526
  Receipt Date: 20100407
  Transmission Date: 20101027
  Serious: No
  Sender: FDA-Public Use
  Company Number: 307044

PATIENT
  Age: 58 Year
  Sex: Male

DRUGS (5)
  1. VICTOZA [Suspect]
     Indication: INSULIN-REQUIRING TYPE 2 DIABETES MELLITUS
     Dosage: 1.2 MG, QD, SUBCUTANEOUS
     Route: 058
  2. VICTOZA [Suspect]
  3. LEVEMIR [Concomitant]
  4. NOVOLOG [Concomitant]
  5. METFORMIN HCL [Concomitant]

REACTIONS (2)
  - ASTHENIA [None]
  - NAUSEA [None]
